FAERS Safety Report 18572609 (Version 1)
Quarter: 2020Q4

REPORT INFORMATION
  Report Type: Report from Study
  Country: None (occurrence: US)
  Receive Date: 20201203
  Receipt Date: 20201203
  Transmission Date: 20210114
  Serious: Yes (Hospitalization)
  Sender: FDA-Public Use
  Company Number: US-ABBVIE-20K-163-3638592-00

PATIENT
  Sex: Male

DRUGS (2)
  1. IMBRUVICA [Suspect]
     Active Substance: IBRUTINIB
     Indication: MYELOID LEUKAEMIA
     Route: 048
     Dates: start: 20200818
  2. IMBRUVICA [Suspect]
     Active Substance: IBRUTINIB
     Route: 048

REACTIONS (6)
  - Anxiety [Unknown]
  - Rash [Unknown]
  - Depression [Unknown]
  - COVID-19 [Unknown]
  - Hepatitis [Unknown]
  - Scrotal dermatitis [Unknown]

NARRATIVE: CASE EVENT DATE: 2020
